FAERS Safety Report 23721998 (Version 3)
Quarter: 2024Q2

REPORT INFORMATION
  Report Type: Spontaneous
  Country: JP (occurrence: JP)
  Receive Date: 20240409
  Receipt Date: 20240502
  Transmission Date: 20240716
  Serious: Yes (Hospitalization)
  Sender: FDA-Public Use
  Company Number: None

PATIENT
  Age: 29 Year
  Sex: Female
  Weight: 48 kg

DRUGS (9)
  1. GANCICLOVIR [Suspect]
     Active Substance: GANCICLOVIR
     Dosage: ROA: IV DRIP
     Route: 042
     Dates: start: 20220704
  2. REMICADE [Suspect]
     Active Substance: INFLIXIMAB
     Dosage: ROA: IV DRIP
     Route: 042
     Dates: start: 20220711, end: 20220711
  3. REMICADE [Suspect]
     Active Substance: INFLIXIMAB
     Dosage: ROA: IV DRIP
     Route: 042
     Dates: start: 20220819, end: 20220819
  4. AZATHIOPRINE [Suspect]
     Active Substance: AZATHIOPRINE
     Dosage: DAILY DOSE: 25 MILLIGRAM
     Route: 048
     Dates: start: 20220711, end: 20221001
  5. STELARA [Suspect]
     Active Substance: USTEKINUMAB
     Dates: start: 20221028
  6. PREDNISOLONE [Concomitant]
     Active Substance: PREDNISOLONE
     Dates: start: 20220715
  7. MESALAMINE [Concomitant]
     Active Substance: MESALAMINE
     Dates: start: 20220622, end: 20220629
  8. UPADACITINIB [Concomitant]
     Active Substance: UPADACITINIB
     Dates: start: 20240326
  9. TACROLIMUS [Concomitant]
     Active Substance: TACROLIMUS
     Dates: start: 20221001

REACTIONS (3)
  - Colitis ulcerative [Unknown]
  - Haematochezia [Unknown]
  - Off label use [Unknown]

NARRATIVE: CASE EVENT DATE: 20220704
